FAERS Safety Report 4864875-4 (Version None)
Quarter: 2005Q4

REPORT INFORMATION
  Report Type: 
  Country: None (occurrence: None)
  Receive Date: 20051201
  Receipt Date: 20050721
  Transmission Date: 20060501
  Serious: No
  Sender: FDA-Public Use
  Company Number: 2005PV000561

PATIENT
  Age: 67 Year
  Sex: Female
  Weight: 103.4201 kg

DRUGS (9)
  1. BYETTA [Suspect]
     Indication: DIABETES MELLITUS NON-INSULIN-DEPENDENT
     Dosage: 5 MCG; BID; SC
     Route: 058
     Dates: start: 20050701
  2. GLUCOVANCE (2.5 MG) [Suspect]
     Indication: DIABETES MELLITUS
     Dosage: 2.5 MG; BID; PO
     Route: 048
     Dates: start: 20050701
  3. DIOVAN [Concomitant]
  4. LEVOXYL [Concomitant]
  5. CRESTOR [Concomitant]
  6. ASPIRIN [Concomitant]
  7. LANTUS [Concomitant]
  8. HUMALOG [Concomitant]
  9. ACTOS [Concomitant]

REACTIONS (3)
  - ABDOMINAL DISTENSION [None]
  - BLOOD GLUCOSE FLUCTUATION [None]
  - NAUSEA [None]
